FAERS Safety Report 18393389 (Version 2)
Quarter: 2020Q4

REPORT INFORMATION
  Report Type: Not Available
  Country: JP (occurrence: JP)
  Receive Date: 20201016
  Receipt Date: 20201117
  Transmission Date: 20210114
  Serious: Yes (Life-Threatening, Hospitalization)
  Sender: FDA-Public Use
  Company Number: JP-JNJFOC-20201022825

PATIENT
  Age: 66 Year
  Sex: Female
  Weight: 61.3 kg

DRUGS (9)
  1. RISPERDAL [Suspect]
     Active Substance: RISPERIDONE
     Indication: SCHIZOPHRENIA
     Dosage: IN THE EVENING
     Route: 048
     Dates: end: 20201003
  2. MUCOSTA [Concomitant]
     Active Substance: REBAMIPIDE
     Dosage: AFTER EACH MEAL
     Route: 048
  3. WYPAX [Concomitant]
     Active Substance: LORAZEPAM
     Dosage: AT BEDTIME
     Route: 048
  4. TENELIA [Concomitant]
     Active Substance: TENELIGLIPTIN
     Dosage: AFTER BREAKFAST
     Route: 048
  5. CALONAL [Concomitant]
     Active Substance: ACETAMINOPHEN
     Dosage: AFTER EACH MEAL
     Route: 048
  6. LENDORMIN [Concomitant]
     Active Substance: BROTIZOLAM
     Dosage: AT BEDTIME
     Route: 048
  7. METHYCOBAL [Concomitant]
     Active Substance: METHYLCOBALAMIN
     Dosage: AFTER EACH MEAL
     Route: 048
  8. METGLUCO [Concomitant]
     Active Substance: METFORMIN HYDROCHLORIDE
     Dosage: AFTER BREAKFAST
     Route: 048
  9. MAGNESIUM OXIDE. [Concomitant]
     Active Substance: MAGNESIUM OXIDE
     Dosage: IN THE EVENING
     Route: 048

REACTIONS (4)
  - Rhabdomyolysis [Unknown]
  - Neuroleptic malignant syndrome [Recovering/Resolving]
  - Inappropriate schedule of product administration [Unknown]
  - Off label use [Unknown]

NARRATIVE: CASE EVENT DATE: 20201003
